FAERS Safety Report 22316255 (Version 1)
Quarter: 2023Q2

REPORT INFORMATION
  Report Type: Spontaneous
  Country: US (occurrence: US)
  Receive Date: 20230513
  Receipt Date: 20230513
  Transmission Date: 20230721
  Serious: No
  Sender: FDA-Public Use
  Company Number: US-GSKCCFUS-Case-01692328_AE-95490

PATIENT
  Sex: Male

DRUGS (1)
  1. INCRUSE ELLIPTA [Suspect]
     Active Substance: UMECLIDINIUM BROMIDE
     Indication: Chronic obstructive pulmonary disease
     Dosage: 62.5 UG, QD
     Route: 055

REACTIONS (5)
  - Nausea [Unknown]
  - Dizziness [Unknown]
  - Cough [Unknown]
  - Retching [Unknown]
  - Product use complaint [Unknown]
